FAERS Safety Report 15890517 (Version 1)
Quarter: 2019Q1

REPORT INFORMATION
  Report Type: Spontaneous
  Country: US (occurrence: US)
  Receive Date: 20190109
  Receipt Date: 20190109
  Transmission Date: 20190417
  Serious: No
  Sender: FDA-Public Use
  Company Number: None

PATIENT
  Age: 28 Year
  Sex: Female

DRUGS (1)
  1. TREMFYA [Suspect]
     Active Substance: GUSELKUMAB
     Indication: PSORIASIS
     Dates: start: 20181210

REACTIONS (4)
  - Injection site mass [None]
  - Injection site extravasation [None]
  - Pain [None]
  - Tenderness [None]

NARRATIVE: CASE EVENT DATE: 20190107
